FAERS Safety Report 5263404-3 (Version None)
Quarter: 2007Q1

REPORT INFORMATION
  Report Type: 
  Country: None (occurrence: None)
  Receive Date: 20070313
  Receipt Date: 20070307
  Transmission Date: 20070707
  Serious: Yes (Hospitalization)
  Sender: FDA-Public Use
  Company Number: CA-BAYER-200710262GDS

PATIENT
  Age: 78 Year
  Sex: Male
  Weight: 82 kg

DRUGS (1)
  1. AVELOX [Suspect]
     Indication: LOWER RESPIRATORY TRACT INFECTION
     Dosage: TOTAL DAILY DOSE: 400 MG  UNIT DOSE: 400 MG
     Route: 048
     Dates: start: 20061101, end: 20061101

REACTIONS (2)
  - GASTROINTESTINAL HAEMORRHAGE [None]
  - HYPOTENSION [None]
